FAERS Safety Report 17969511 (Version 2)
Quarter: 2020Q3

REPORT INFORMATION
  Report Type: Spontaneous
  Country: DE (occurrence: DE)
  Receive Date: 20200701
  Receipt Date: 20200709
  Transmission Date: 20201103
  Serious: Yes (Hospitalization, Other)
  Sender: FDA-Public Use
  Company Number: DE-MYLANLABS-2020M1059275

PATIENT
  Sex: Female

DRUGS (2)
  1. BISOPROLOL [Suspect]
     Active Substance: BISOPROLOL
     Indication: ATRIAL FIBRILLATION
     Dosage: 5 MILLIGRAM, QD
  2. LANREOTIDE [Interacting]
     Active Substance: LANREOTIDE
     Indication: NEUROENDOCRINE TUMOUR
     Dosage: 120 MG, QM

REACTIONS (6)
  - Atrial fibrillation [Unknown]
  - Heart rate decreased [Unknown]
  - Drug interaction [Unknown]
  - Blood potassium decreased [Unknown]
  - Headache [Unknown]
  - Cardiac disorder [Unknown]
